FAERS Safety Report 7691878-7 (Version None)
Quarter: 2011Q3

REPORT INFORMATION
  Report Type: 
  Country: None (occurrence: None)
  Receive Date: 20110818
  Receipt Date: 20110816
  Transmission Date: 20111222
  Serious: Yes (Hospitalization)
  Sender: FDA-Public Use
  Company Number: US-ELI_LILLY_AND_COMPANY-US201108005244

PATIENT
  Age: 67 Year
  Sex: Male

DRUGS (3)
  1. CISPLATIN [Suspect]
     Indication: BLADDER CANCER
     Dosage: UNK
     Dates: start: 20090604
  2. GEMCITABINE HYDROCHLORIDE [Suspect]
     Indication: BLADDER CANCER
     Dosage: UNK
     Dates: start: 20090604
  3. SUNITINIB MALATE [Suspect]
     Indication: BLADDER CANCER
     Dosage: UNK
     Dates: start: 20090604

REACTIONS (2)
  - PYREXIA [None]
  - CELLULITIS [None]
